FAERS Safety Report 5071496-X (Version None)
Quarter: 2006Q3

REPORT INFORMATION
  Report Type: 
  Country: None (occurrence: None)
  Receive Date: 20060803
  Receipt Date: 20060803
  Transmission Date: 20061208
  Serious: Yes (Hospitalization)
  Sender: FDA-Public Use
  Company Number: None

PATIENT
  Age: 79 Year
  Sex: Male
  Weight: 114 kg

DRUGS (4)
  1. WARFARIN SODIUM [Suspect]
     Indication: ATRIAL FIBRILLATION
     Dosage: 2 MG PO DAILY
     Route: 048
     Dates: start: 20060415, end: 20060424
  2. ASPIRIN [Suspect]
     Indication: CARDIOVASCULAR EVENT PROPHYLAXIS
     Dosage: 81 MG PO DAILY
     Route: 048
     Dates: start: 20060415, end: 20060426
  3. ASPIRIN [Suspect]
     Indication: DRUG THERAPY
     Dosage: 81 MG PO DAILY
     Route: 048
     Dates: start: 20060415, end: 20060426
  4. ASPIRIN [Suspect]
     Indication: PREMEDICATION
     Dosage: 81 MG PO DAILY
     Route: 048
     Dates: start: 20060415, end: 20060426

REACTIONS (3)
  - HAEMATEMESIS [None]
  - INTERNATIONAL NORMALISED RATIO INCREASED [None]
  - UPPER GASTROINTESTINAL HAEMORRHAGE [None]
